FAERS Safety Report 19621452 (Version 1)
Quarter: 2021Q3

REPORT INFORMATION
  Report Type: Spontaneous
  Country: US (occurrence: US)
  Receive Date: 20210728
  Receipt Date: 20210728
  Transmission Date: 20211014
  Serious: Yes (Other)
  Sender: FDA-Public Use
  Company Number: None

PATIENT
  Age: 71 Year
  Sex: Female
  Weight: 50.8 kg

DRUGS (7)
  1. ZINC. [Concomitant]
     Active Substance: ZINC
  2. VITAMIN C [Concomitant]
     Active Substance: ASCORBIC ACID
  3. CIPROFLOXACIN HCL [Suspect]
     Active Substance: CIPROFLOXACIN HYDROCHLORIDE
     Indication: URINARY TRACT INFECTION
     Dosage: ?          QUANTITY:20 DF DOSAGE FORM;?
     Route: 048
     Dates: start: 20210629, end: 20210629
  4. CALCIUM [Concomitant]
     Active Substance: CALCIUM
  5. MAGNESIUM [Concomitant]
     Active Substance: MAGNESIUM
  6. ICY HOT [Concomitant]
     Active Substance: MENTHOL\METHYL SALICYLATE
  7. B 12 SHOTS [Concomitant]

REACTIONS (2)
  - Therapy change [None]
  - Pain in extremity [None]

NARRATIVE: CASE EVENT DATE: 20210629
